FAERS Safety Report 16273767 (Version 1)
Quarter: 2019Q2

REPORT INFORMATION
  Report Type: Spontaneous
  Country: US (occurrence: US)
  Receive Date: 20190506
  Receipt Date: 20190506
  Transmission Date: 20190711
  Serious: No
  Sender: FDA-Public Use
  Company Number: US-EMD SERONO-9088804

PATIENT
  Sex: Female

DRUGS (1)
  1. REBIF [Suspect]
     Active Substance: INTERFERON BETA-1A
     Indication: MULTIPLE SCLEROSIS
     Route: 058
     Dates: start: 2011, end: 2019

REACTIONS (5)
  - Influenza like illness [Unknown]
  - Arthralgia [Unknown]
  - Drug ineffective [Unknown]
  - Tension [Unknown]
  - Migraine [Unknown]
